FAERS Safety Report 15867212 (Version 1)
Quarter: 2019Q1

REPORT INFORMATION
  Report Type: Spontaneous
  Country: US (occurrence: US)
  Receive Date: 20190102
  Receipt Date: 20190102
  Transmission Date: 20190417
  Serious: No
  Sender: FDA-Public Use
  Company Number: None

PATIENT
  Age: 43 Year
  Sex: Female
  Weight: 131.09 kg

DRUGS (1)
  1. TREMFYA [Suspect]
     Active Substance: GUSELKUMAB
     Indication: PSORIASIS
     Dosage: INJECT 100MG SUBCUTANEOUSLY ON WEEK  0 AND WEEK 4 AS DIRECTED
     Dates: start: 201807

REACTIONS (1)
  - Cellulitis [None]
